FAERS Safety Report 11760265 (Version 1)
Quarter: 2015Q4

REPORT INFORMATION
  Report Type: Spontaneous
  Country: US (occurrence: US)
  Receive Date: 20151120
  Receipt Date: 20151120
  Transmission Date: 20160304
  Serious: No
  Sender: FDA-Public Use
  Company Number: US-ELI_LILLY_AND_COMPANY-US201210001077

PATIENT
  Age: 69 Year
  Sex: Female
  Weight: 54.88 kg

DRUGS (4)
  1. VITAMIN D [Concomitant]
     Active Substance: CHOLECALCIFEROL
     Dosage: 400 IU, QD
     Route: 065
  2. FORTEO [Suspect]
     Active Substance: TERIPARATIDE
     Dosage: 20 UG, QD
     Route: 058
     Dates: start: 2012, end: 20120901
  3. CALCIUM [Concomitant]
     Active Substance: CALCIUM
     Dosage: 1 DF, QD
     Route: 065
  4. FORTEO [Suspect]
     Active Substance: TERIPARATIDE
     Dosage: 20 UG, QD
     Route: 058
     Dates: start: 20120909, end: 20121010

REACTIONS (5)
  - Urine electrolytes abnormal [Unknown]
  - Muscle spasms [Unknown]
  - Hypercalciuria [Unknown]
  - Arthralgia [Recovering/Resolving]
  - Pain in extremity [Recovering/Resolving]

NARRATIVE: CASE EVENT DATE: 2012
